FAERS Safety Report 19144047 (Version 2)
Quarter: 2021Q2

REPORT INFORMATION
  Report Type: Spontaneous
  Country: US (occurrence: US)
  Receive Date: 20210416
  Receipt Date: 20210527
  Transmission Date: 20210717
  Serious: No
  Sender: FDA-Public Use
  Company Number: US-GLAXOSMITHKLINE-US2021AMR084147

PATIENT
  Sex: Male

DRUGS (1)
  1. NUCALA [Suspect]
     Active Substance: MEPOLIZUMAB
     Indication: PRODUCT USED FOR UNKNOWN INDICATION
     Dosage: UNK,100MG/ML 1X1ML
     Route: 042

REACTIONS (4)
  - Exposure via skin contact [Unknown]
  - Incorrect dose administered [Unknown]
  - Accidental exposure to product [Recovered/Resolved]
  - Product complaint [Unknown]
